FAERS Safety Report 16419327 (Version 2)
Quarter: 2019Q2

REPORT INFORMATION
  Report Type: Spontaneous
  Country: GB (occurrence: GB)
  Receive Date: 20190612
  Receipt Date: 20190612
  Transmission Date: 20190711
  Serious: Yes (Other)
  Sender: FDA-Public Use
  Company Number: GB-BAYER-2019-107024

PATIENT
  Age: 17 Year
  Sex: Female

DRUGS (7)
  1. LAMOTRIGINE. [Interacting]
     Active Substance: LAMOTRIGINE
     Indication: EPILEPSY
     Dosage: 400 MG, UNK
  2. ZONISAMIDE. [Concomitant]
     Active Substance: ZONISAMIDE
     Dosage: 100 MG, UNK
  3. VALPROATE SODIUM. [Interacting]
     Active Substance: VALPROATE SODIUM
     Indication: EPILEPSY
     Dosage: 2000 MG, UNK
  4. NORETHISTERONE ACETATE [Interacting]
     Active Substance: NORETHINDRONE ACETATE
     Route: 048
  5. LAMOTRIGINE. [Interacting]
     Active Substance: LAMOTRIGINE
     Indication: EPILEPSY
     Dosage: 400 MG, UNK
  6. LEVONORGESTREL (ORAL) [Suspect]
     Active Substance: LEVONORGESTREL
  7. VALPROATE SODIUM. [Interacting]
     Active Substance: VALPROATE SODIUM
     Indication: EPILEPSY
     Dosage: 1200 MG, UNK

REACTIONS (5)
  - Petit mal epilepsy [Unknown]
  - Fatigue [Unknown]
  - Inhibitory drug interaction [Unknown]
  - Condition aggravated [Unknown]
  - Therapeutic response decreased [None]
